FAERS Safety Report 7403219-0 (Version None)
Quarter: 2011Q2

REPORT INFORMATION
  Report Type: 
  Country: None (occurrence: None)
  Receive Date: 20110408
  Receipt Date: 20110329
  Transmission Date: 20111010
  Serious: Yes (Hospitalization)
  Sender: FDA-Public Use
  Company Number: US-PFIZER INC-2004194999US

PATIENT
  Sex: Female
  Weight: 93 kg

DRUGS (16)
  1. FAMOTIDINE [Concomitant]
     Indication: GASTROOESOPHAGEAL REFLUX DISEASE
  2. IRBESARTAN [Concomitant]
     Indication: HYPERTENSION
  3. AVALIDE [Concomitant]
     Dosage: 300/12.5 MG, 1X/DAY
     Route: 048
     Dates: start: 20030310, end: 20040101
  4. RANITIDINE [Concomitant]
     Indication: GASTROOESOPHAGEAL REFLUX DISEASE
     Dosage: 150 MG, 2X/DAY
     Route: 048
  5. EXEMESTANE [Suspect]
     Indication: BREAST CANCER FEMALE
     Dosage: 25 MG, 1X/DAY
     Route: 048
     Dates: start: 20020708, end: 20031225
  6. ZIAC [Concomitant]
     Dosage: 2.5/6.25 MG, 1X/DAY
     Route: 048
     Dates: start: 20020627
  7. EXEMESTANE [Suspect]
     Dosage: 25 MG, 1X/DAY
     Route: 048
     Dates: start: 20040101
  8. HYDROCHLOROTHIAZIDE [Concomitant]
     Indication: HYPERTENSION
  9. PROTONIX [Concomitant]
     Indication: GASTROOESOPHAGEAL REFLUX DISEASE
     Dosage: 40 MG, 1X/DAY
     Route: 048
  10. NORVASC [Concomitant]
     Indication: HYPERTENSION
     Dosage: 5 MG, 1X/DAY
     Route: 048
     Dates: start: 20020725
  11. ACETYLSALICYLIC ACID SRT [Concomitant]
     Indication: HYPERTENSION
     Dosage: 325 MG, 1X/DAY
     Route: 048
  12. NORVASC [Concomitant]
     Dosage: 10 MG, 2X/DAY
     Route: 048
  13. ZANTAC [Concomitant]
     Dosage: 2XDAY
     Route: 048
     Dates: start: 20020725
  14. AMITRIPTYLINE [Concomitant]
     Indication: HYPERTENSION
     Dosage: 25 MG, 1X/DAY
     Route: 048
  15. PROCRIT [Concomitant]
     Dosage: 20,000-40,000 UNIT, UNK
     Route: 058
     Dates: start: 20020806
  16. INSULIN [Concomitant]
     Indication: DIABETES MELLITUS
     Route: 048
     Dates: start: 20020627

REACTIONS (2)
  - RENAL FAILURE ACUTE [None]
  - CEREBROVASCULAR ACCIDENT [None]
